FAERS Safety Report 7252940-6 (Version None)
Quarter: 2011Q1

REPORT INFORMATION
  Report Type: 
  Country: None (occurrence: None)
  Receive Date: 20110129
  Receipt Date: 20100302
  Transmission Date: 20110831
  Serious: No
  Sender: FDA-Public Use
  Company Number: US-ABBOTT-10P-163-0629735-00

PATIENT
  Sex: Female
  Weight: 61.29 kg

DRUGS (2)
  1. HUMIRA [Suspect]
     Indication: RHEUMATOID ARTHRITIS
     Route: 058
     Dates: start: 20091001, end: 20100101
  2. HUMIRA [Suspect]
     Dosage: 1 WEEK IN FEB 2010, SKIPPED A DOSE.
     Route: 058
     Dates: start: 20100101

REACTIONS (4)
  - ARTHRITIS [None]
  - INCREASED VISCOSITY OF BRONCHIAL SECRETION [None]
  - PRODUCTIVE COUGH [None]
  - BRONCHITIS [None]
